FAERS Safety Report 10396013 (Version 1)
Quarter: 2014Q3

REPORT INFORMATION
  Report Type: Spontaneous
  Country: CA (occurrence: CA)
  Receive Date: 20140820
  Receipt Date: 20140820
  Transmission Date: 20150326
  Serious: Yes (Death)
  Sender: FDA-Public Use
  Company Number: CA-BAYER-2014-119258

PATIENT
  Age: 58 Year
  Sex: Male
  Weight: 66.21 kg

DRUGS (5)
  1. FRAGMIN [Concomitant]
     Active Substance: DALTEPARIN SODIUM
  2. HYDROMORPHONE [Concomitant]
     Active Substance: HYDROMORPHONE
  3. PANTOLOC [Concomitant]
     Active Substance: PANTOPRAZOLE SODIUM
  4. URSO [Concomitant]
     Active Substance: URSODIOL
  5. STIVARGA [Suspect]
     Active Substance: REGORAFENIB
     Dosage: DOSING: 180MG, CYCLICAL
     Route: 048

REACTIONS (3)
  - Gastrointestinal perforation [Fatal]
  - Septic shock [Fatal]
  - Colitis [Fatal]
